FAERS Safety Report 8683006 (Version 3)
Quarter: 2012Q4

REPORT INFORMATION
  Report Type: 
  Country: US (occurrence: US)
  Receive Date: 20120725
  Receipt Date: 20120920
  Transmission Date: 20130627
  Serious: Yes (Hospitalization, Other)
  Sender: FDA-Public Use
  Company Number: US-009507513-2011SP050842

PATIENT

DRUGS (3)
  1. NUVARING [Suspect]
     Indication: CONTRACEPTION
     Dates: start: 200909, end: 20091030
  2. NUVARING [Suspect]
     Dates: start: 200908
  3. PROZAC [Suspect]
     Indication: DEPRESSION
     Dates: start: 2004

REACTIONS (4)
  - Oligohydramnios [Recovered/Resolved]
  - Pulmonary embolism [Recovered/Resolved]
  - Drug screen positive [Unknown]
  - Cervical dysplasia [Unknown]
